FAERS Safety Report 8943777 (Version 1)
Quarter: 2012Q4

REPORT INFORMATION
  Report Type: 
  Country: FR (occurrence: FR)
  Receive Date: 20121203
  Receipt Date: 20121203
  Transmission Date: 20130627
  Serious: Yes (Other)
  Sender: FDA-Public Use
  Company Number: FR-GLAXOSMITHKLINE-B0846416A

PATIENT
  Age: 78 None
  Sex: Male

DRUGS (4)
  1. AVODART [Suspect]
     Indication: BENIGN PROSTATIC HYPERPLASIA
     Dosage: .5MG Per day
     Route: 048
  2. APROVEL [Suspect]
     Indication: HYPERTENSION
     Route: 048
  3. TAHOR [Suspect]
     Indication: HYPERCHOLESTEROLAEMIA
     Route: 048
  4. TAMSULOSIN [Suspect]
     Indication: BENIGN PROSTATIC HYPERPLASIA
     Dosage: .4MG Unknown
     Route: 048
     Dates: end: 201204

REACTIONS (9)
  - Hepatitis [Recovering/Resolving]
  - Jaundice [Recovered/Resolved]
  - Rash [Recovered/Resolved]
  - Pruritus [Recovered/Resolved]
  - Hepatomegaly [Recovered/Resolved]
  - Neutrophil count increased [Unknown]
  - Inflammation [Recovering/Resolving]
  - Cholestasis [Recovering/Resolving]
  - Hepatic steatosis [Recovering/Resolving]
